FAERS Safety Report 5022178-1 (Version None)
Quarter: 2006Q2

REPORT INFORMATION
  Report Type: 
  Country: None (occurrence: None)
  Receive Date: 20060428
  Receipt Date: 20060111
  Transmission Date: 20061013
  Serious: No
  Sender: FDA-Public Use
  Company Number: COT_0366_2006

PATIENT
  Age: 61 Year
  Sex: Male
  Weight: 94.8018 kg

DRUGS (11)
  1. VENTAVIS [Suspect]
     Indication: PULMONARY HYPERTENSION
     Dosage: 5 MCG 6XD IH
     Dates: start: 20050418
  2. ULTRACET [Concomitant]
  3. AVAPRO [Concomitant]
  4. ELAVIL [Concomitant]
  5. SYNTHROID [Concomitant]
  6. NORVASC [Concomitant]
  7. PREDNISONE [Concomitant]
  8. NEURONTIN [Concomitant]
  9. ROBAXIN [Concomitant]
  10. ENBREL [Concomitant]
  11. TRACLEER [Concomitant]

REACTIONS (3)
  - FATIGUE [None]
  - NAUSEA [None]
  - SYNCOPE [None]
